FAERS Safety Report 8976548 (Version 2)
Quarter: 2012Q4

REPORT INFORMATION
  Report Type: 
  Country: US (occurrence: US)
  Receive Date: 20121220
  Receipt Date: 20121221
  Transmission Date: 20130627
  Serious: Yes (Other)
  Sender: FDA-Public Use
  Company Number: CHPA2012US025100

PATIENT
  Age: 82 Year
  Sex: Female

DRUGS (5)
  1. VOLTAREN GEL [Suspect]
     Indication: PAIN
     Dosage: Unk, Unk
     Route: 061
     Dates: start: 201206
  2. ASPIRIN [Concomitant]
     Indication: ANTICOAGULANT THERAPY
     Dosage: 325 mg, QD
     Route: 048
  3. SYNTHROID [Concomitant]
     Indication: CARDIAC DISORDER
     Dosage: 1.75 mg, QD
     Route: 048
  4. LOSARTAN [Concomitant]
     Indication: BLOOD PRESSURE
     Dosage: 50 mg, Unk
  5. LOSARTAN [Concomitant]
     Dosage: 100 mg, Unk

REACTIONS (5)
  - Hypoaesthesia [Recovered/Resolved]
  - Chest pain [Recovered/Resolved]
  - Off label use [Unknown]
  - Therapeutic response unexpected [Unknown]
  - Drug administered at inappropriate site [Unknown]
